FAERS Safety Report 8447956-8 (Version None)
Quarter: 2012Q2

REPORT INFORMATION
  Report Type: 
  Country: None (occurrence: None)
  Receive Date: 20120619
  Receipt Date: 20120611
  Transmission Date: 20120825
  Serious: Yes (Other)
  Sender: FDA-Public Use
  Company Number: US-JNJFOC-20120403224

PATIENT
  Sex: Male
  Weight: 88 kg

DRUGS (18)
  1. XARELTO [Suspect]
     Indication: KNEE ARTHROPLASTY
     Dosage: 3 DOSES
     Route: 048
     Dates: start: 20120321, end: 20120323
  2. METOPROLOL TARTRATE [Concomitant]
     Route: 048
  3. DILAUDID [Concomitant]
     Dosage: PCA
     Dates: start: 20120321, end: 20120322
  4. XARELTO [Suspect]
     Indication: THROMBOSIS PROPHYLAXIS
     Dosage: 3 DOSES
     Route: 048
     Dates: start: 20120321, end: 20120323
  5. CELEBREX [Concomitant]
     Route: 048
     Dates: start: 20120321, end: 20120324
  6. ASPIRIN [Concomitant]
     Route: 048
  7. VERSED [Concomitant]
     Dates: start: 20120301
  8. NORCO [Concomitant]
     Dosage: 7.5/325
     Dates: start: 20120321
  9. ZOFRAN [Concomitant]
  10. VANCOMYCIN [Concomitant]
     Route: 042
     Dates: start: 20120321, end: 20120324
  11. TEKTURNA [Concomitant]
     Route: 048
  12. NORVASC [Concomitant]
     Route: 048
     Dates: start: 20120321, end: 20120324
  13. CRESTOR [Concomitant]
     Route: 048
     Dates: start: 20120321, end: 20120324
  14. ANCEF [Concomitant]
     Dosage: 3 DOSES
     Route: 042
     Dates: start: 20120320, end: 20120321
  15. ULTRAM [Concomitant]
  16. COLACE [Concomitant]
     Route: 048
     Dates: start: 20120321, end: 20120324
  17. LOPRESSOR [Concomitant]
     Dates: start: 20120321, end: 20120324
  18. SLOW FE [Concomitant]
     Dates: start: 20120321, end: 20120324

REACTIONS (1)
  - PULMONARY EMBOLISM [None]
